FAERS Safety Report 5613710-5 (Version None)
Quarter: 2008Q1

REPORT INFORMATION
  Report Type: 
  Country: None (occurrence: None)
  Receive Date: 20080205
  Receipt Date: 20080125
  Transmission Date: 20080703
  Serious: Yes (Death)
  Sender: FDA-Public Use
  Company Number: GB-NOVOPROD-271436

PATIENT
  Age: 58 Year
  Sex: Male

DRUGS (1)
  1. HUMAN MIXTARD 30 HM(GE) [Suspect]
     Indication: INSULIN-REQUIRING TYPE 2 DIABETES MELLITUS
     Dosage: 50 IU, QD
     Route: 058

REACTIONS (1)
  - DEATH [None]
